FAERS Safety Report 15697605 (Version 2)
Quarter: 2019Q1

REPORT INFORMATION
  Report Type: Spontaneous
  Country: PL (occurrence: PL)
  Receive Date: 20181207
  Receipt Date: 20190111
  Transmission Date: 20190417
  Serious: Yes (Hospitalization)
  Sender: FDA-Public Use
  Company Number: PL-TEVA-2018-PL-984031

PATIENT
  Age: 52 Year
  Sex: Male

DRUGS (6)
  1. METAMIZOLE 500 MG [Suspect]
     Active Substance: METAMIZOLE SODIUM
     Indication: ANALGESIC THERAPY
     Dosage: 1000 MILLIGRAM DAILY;
     Route: 048
  2. KETOPROFEN 100 MG [Suspect]
     Active Substance: KETOPROFEN
     Indication: ANALGESIC THERAPY
     Dosage: 300 MILLIGRAM DAILY;
     Route: 048
  3. BUPRENORPHINE. [Suspect]
     Active Substance: BUPRENORPHINE
     Indication: ANALGESIC THERAPY
     Dosage: 35 UG/H EVERY 4 DAYS
  4. TRAMADOL 100 MG [Suspect]
     Active Substance: TRAMADOL
     Indication: ANALGESIC THERAPY
     Dosage: 200 MILLIGRAM DAILY; CONTROLLED-RELEASE
  5. OMEPRAZOLE 20 MG [Concomitant]
     Active Substance: OMEPRAZOLE
     Dosage: 20 MILLIGRAM DAILY; IN THE MORNING, IN FASTING CONDITION
  6. METOCLOPRAMIDE 10 MG [Concomitant]
     Active Substance: METOCLOPRAMIDE
     Dosage: 30 MILLIGRAM DAILY; FOR ABOUT 3 WEEKS

REACTIONS (1)
  - Inadequate analgesia [Recovering/Resolving]
